FAERS Safety Report 9403410 (Version 1)
Quarter: 2013Q3

REPORT INFORMATION
  Report Type: Spontaneous
  Country: CN (occurrence: CN)
  Receive Date: 20130716
  Receipt Date: 20130716
  Transmission Date: 20140515
  Serious: Yes (Other)
  Sender: FDA-Public Use
  Company Number: CN-BAXTER-2013BAX026366

PATIENT
  Age: 93 Year
  Sex: Male

DRUGS (2)
  1. 20% MANNITOL INJECTION [Suspect]
     Indication: INTRACRANIAL PRESSURE INCREASED
     Route: 041
     Dates: start: 20120101, end: 20120106
  2. 20% MANNITOL INJECTION [Suspect]
     Route: 041
     Dates: start: 20120106, end: 20120115

REACTIONS (2)
  - Renal impairment [Recovering/Resolving]
  - Hepatic function abnormal [Recovering/Resolving]
